FAERS Safety Report 13432600 (Version 2)
Quarter: 2017Q2

REPORT INFORMATION
  Report Type: Spontaneous
  Country: US (occurrence: US)
  Receive Date: 20170412
  Receipt Date: 20170515
  Transmission Date: 20170830
  Serious: Yes (Hospitalization)
  Sender: FDA-Public Use
  Company Number: US-GLAXOSMITHKLINE-US2017051793

PATIENT
  Age: 68 Year
  Sex: Male

DRUGS (1)
  1. VENTOLIN HFA [Suspect]
     Active Substance: ALBUTEROL SULFATE
     Indication: PRODUCT USED FOR UNKNOWN INDICATION
     Dosage: 1 PUFF(S), PRN
     Route: 055

REACTIONS (3)
  - Product use issue [Unknown]
  - Product quality issue [Unknown]
  - Heart rate increased [Recovering/Resolving]

NARRATIVE: CASE EVENT DATE: 20170406
